FAERS Safety Report 9103968 (Version 1)
Quarter: 2013Q1

REPORT INFORMATION
  Report Type: Report from Study
  Country: CA (occurrence: CA)
  Receive Date: 20130219
  Receipt Date: 20130219
  Transmission Date: 20140127
  Serious: Yes (Hospitalization)
  Sender: FDA-Public Use
  Company Number: CA-JNJFOC-20130206305

PATIENT
  Sex: Male
  Weight: 110 kg

DRUGS (3)
  1. REMICADE [Suspect]
     Indication: RHEUMATOID ARTHRITIS
     Route: 042
     Dates: start: 20070430
  2. AVODART [Concomitant]
     Route: 048
  3. TAMSULOSINE HCL SANDOZ [Concomitant]
     Route: 048

REACTIONS (2)
  - Pain in jaw [Unknown]
  - Nerve injury [Unknown]
